FAERS Safety Report 14873425 (Version 3)
Quarter: 2018Q2

REPORT INFORMATION
  Report Type: Spontaneous
  Country: US (occurrence: US)
  Receive Date: 20180510
  Receipt Date: 20180601
  Transmission Date: 20180711
  Serious: No
  Sender: FDA-Public Use
  Company Number: US-PFIZER INC-2018189942

PATIENT
  Age: 45 Year
  Sex: Female
  Weight: 158 kg

DRUGS (4)
  1. PROVERA [Suspect]
     Active Substance: MEDROXYPROGESTERONE ACETATE
     Indication: OVARIAN CANCER STAGE I
     Dosage: 160 MG, 1X/DAY [16 TABLET AT ONE TIME TO MAKE 160MG AT ONE TIME ]
     Dates: start: 20180426
  2. PROVERA [Suspect]
     Active Substance: MEDROXYPROGESTERONE ACETATE
     Indication: OVARIAN CANCER STAGE II
     Dosage: UNK
     Dates: end: 20180428
  3. PROVERA [Suspect]
     Active Substance: MEDROXYPROGESTERONE ACETATE
     Indication: UTERINE CANCER
  4. PROVERA [Suspect]
     Active Substance: MEDROXYPROGESTERONE ACETATE
     Indication: NEOPLASM MALIGNANT

REACTIONS (4)
  - Blister [Not Recovered/Not Resolved]
  - Product use in unapproved indication [Recovered/Resolved]
  - Urticaria [Recovered/Resolved]
  - Rash [Recovered/Resolved]

NARRATIVE: CASE EVENT DATE: 20180426
